FAERS Safety Report 7606129-9 (Version None)
Quarter: 2011Q3

REPORT INFORMATION
  Report Type: 
  Country: None (occurrence: None)
  Receive Date: 20110713
  Receipt Date: 20110629
  Transmission Date: 20111222
  Serious: No
  Sender: FDA-Public Use
  Company Number: US-B.I. PHARMACEUTICALS,INC./RIDGEFIELD-2010-BP-08531BP

PATIENT
  Sex: Female

DRUGS (3)
  1. SPIRIVA [Suspect]
     Route: 048
  2. ASPIRIN [Concomitant]
     Indication: CARDIAC DISORDER
     Route: 048
  3. SPIRIVA [Suspect]
     Indication: CHRONIC OBSTRUCTIVE PULMONARY DISEASE
     Dosage: 18 MCG
     Route: 055

REACTIONS (4)
  - INCREASED UPPER AIRWAY SECRETION [None]
  - INCORRECT ROUTE OF DRUG ADMINISTRATION [None]
  - HYPERTENSION [None]
  - DIABETES MELLITUS [None]
